FAERS Safety Report 10011031 (Version 2)
Quarter: 2014Q2

REPORT INFORMATION
  Report Type: Spontaneous
  Country: US (occurrence: US)
  Receive Date: 20140314
  Receipt Date: 20140403
  Transmission Date: 20141212
  Serious: Yes (Death, Hospitalization)
  Sender: FDA-Public Use
  Company Number: US-BAXTER-2014BAX012300

PATIENT
  Sex: Male

DRUGS (2)
  1. DIANEAL PD2 [Suspect]
     Indication: PERITONEAL DIALYSIS
     Route: 033
     Dates: start: 201307, end: 20140309
  2. DIANEAL PD2 [Suspect]
     Indication: PERITONEAL DIALYSIS
     Route: 033
     Dates: start: 201307, end: 20140309

REACTIONS (7)
  - Acute myocardial infarction [Fatal]
  - Disease complication [Fatal]
  - Hypertension [Fatal]
  - Pneumonia aspiration [Fatal]
  - Acute respiratory failure [Fatal]
  - Sepsis [Fatal]
  - Fall [Unknown]
